FAERS Safety Report 19810259 (Version 2)
Quarter: 2022Q1

REPORT INFORMATION
  Report Type: Spontaneous
  Country: US (occurrence: US)
  Receive Date: 20210909
  Receipt Date: 20220120
  Transmission Date: 20220423
  Serious: No
  Sender: FDA-Public Use
  Company Number: US-AMGEN-USASP2021137134

PATIENT
  Age: 34 Year
  Sex: Female

DRUGS (6)
  1. XGEVA [Suspect]
     Active Substance: DENOSUMAB
     Indication: Metastases to bone
     Dosage: 120 MILLIGRAM, QMO
     Route: 065
     Dates: start: 20200602
  2. XGEVA [Suspect]
     Active Substance: DENOSUMAB
     Indication: Breast cancer
     Dosage: 120 MILLIGRAM, Q3MO
     Route: 065
  3. XGEVA [Suspect]
     Active Substance: DENOSUMAB
     Indication: Anaemia
     Dosage: 120 MILLIGRAM, Q3MO
     Route: 065
  4. XGEVA [Suspect]
     Active Substance: DENOSUMAB
     Indication: Iron deficiency
  5. XGEVA [Suspect]
     Active Substance: DENOSUMAB
     Indication: Neutropenia
  6. XGEVA [Suspect]
     Active Substance: DENOSUMAB
     Indication: Bone cancer

REACTIONS (1)
  - Off label use [Unknown]

NARRATIVE: CASE EVENT DATE: 20211222
